FAERS Safety Report 21609474 (Version 1)
Quarter: 2022Q4

REPORT INFORMATION
  Report Type: Spontaneous
  Country: US (occurrence: US)
  Receive Date: 20221117
  Receipt Date: 20221117
  Transmission Date: 20230113
  Serious: No
  Sender: FDA-Public Use
  Company Number: US-HORIZON THERAPEUTICS-HZN-2022-007277

PATIENT

DRUGS (1)
  1. TEPEZZA [Suspect]
     Active Substance: TEPROTUMUMAB-TRBW
     Indication: Product used for unknown indication
     Dosage: FIRST DOSE (UNK)
     Route: 065
     Dates: start: 2022

REACTIONS (4)
  - Immune-mediated adverse reaction [Unknown]
  - Heart rate increased [Unknown]
  - Palpitations [Unknown]
  - Anxiety [Unknown]
